FAERS Safety Report 7938155-4 (Version None)
Quarter: 2011Q4

REPORT INFORMATION
  Report Type: 
  Country: None (occurrence: None)
  Receive Date: 20111123
  Receipt Date: 20111020
  Transmission Date: 20120403
  Serious: No
  Sender: FDA-Public Use
  Company Number: US-BRISTOL-MYERS SQUIBB COMPANY-16179376

PATIENT
  Age: 64 Year
  Sex: Male
  Weight: 134 kg

DRUGS (11)
  1. ASCORBIC ACID [Concomitant]
  2. ONGLYZA [Suspect]
     Dates: start: 20111001
  3. CARDIZEM [Concomitant]
  4. VITAMIN D [Concomitant]
  5. MULTI-VITAMINS [Concomitant]
  6. DIOVAN [Concomitant]
  7. EFFEXOR [Concomitant]
  8. FUROSEMIDE [Concomitant]
  9. LEVEMIR [Concomitant]
     Dosage: 50 UNITS
  10. LIPITOR [Concomitant]
  11. AMLODIPINE BESYLATE [Concomitant]

REACTIONS (1)
  - PRURITUS [None]
